FAERS Safety Report 6174912-5 (Version None)
Quarter: 2009Q2

REPORT INFORMATION
  Report Type: 
  Country: None (occurrence: None)
  Receive Date: 20090430
  Receipt Date: 20081027
  Transmission Date: 20091009
  Serious: No
  Sender: FDA-Public Use
  Company Number: CA-ASTRAZENECA-2008UW21562

PATIENT
  Age: 36 Year
  Sex: Male

DRUGS (3)
  1. NEXIUM [Suspect]
     Indication: THROAT IRRITATION
     Route: 048
     Dates: start: 20080928
  2. NEXIUM [Suspect]
     Indication: DYSPEPSIA
     Route: 048
     Dates: start: 20080928
  3. MAALOX [Concomitant]
     Dosage: AS NEEDED

REACTIONS (4)
  - ABDOMINAL DISCOMFORT [None]
  - DRUG INEFFECTIVE [None]
  - DYSGEUSIA [None]
  - THROAT IRRITATION [None]
